FAERS Safety Report 7219860-4 (Version None)
Quarter: 2011Q1

REPORT INFORMATION
  Report Type: 
  Country: None (occurrence: None)
  Receive Date: 20110111
  Receipt Date: 20110103
  Transmission Date: 20110831
  Serious: Yes (Hospitalization)
  Sender: FDA-Public Use
  Company Number: FR-ASTRAZENECA-2011SE00548

PATIENT
  Age: 87 Year
  Sex: Male

DRUGS (6)
  1. ALLOPURINOL [Concomitant]
     Dosage: FROM SEVERAL YEARS
  2. PREVISCAN [Concomitant]
     Dosage: FROM SEVERAL YEARS
  3. AUGMENTIN '125' [Suspect]
     Indication: PYREXIA
     Route: 042
     Dates: start: 20090101, end: 20090130
  4. ZOLADEX [Concomitant]
     Indication: PROSTATE CANCER RECURRENT
     Route: 058
     Dates: start: 20090129
  5. CASODEX [Suspect]
     Indication: PROSTATE CANCER RECURRENT
     Route: 048
     Dates: start: 20090129, end: 20090317
  6. NEXIUM [Suspect]
     Indication: OESOPHAGITIS
     Route: 048
     Dates: start: 20090117

REACTIONS (2)
  - SKIN TEST NEGATIVE [None]
  - ECZEMA [None]
